FAERS Safety Report 17659664 (Version 3)
Quarter: 2020Q2

REPORT INFORMATION
  Report Type: Spontaneous
  Country: RU (occurrence: RU)
  Receive Date: 20200413
  Receipt Date: 20200512
  Transmission Date: 20200713
  Serious: Yes (Death, Hospitalization)
  Sender: FDA-Public Use
  Company Number: RU-TEVA-2020-RU-1222734

PATIENT
  Age: 13 Year
  Sex: Female

DRUGS (15)
  1. IFOSFAMIDE. [Suspect]
     Active Substance: IFOSFAMIDE
     Indication: EWING^S SARCOMA
     Dosage: VIDE REGIMEN
     Route: 065
  2. VINCRISTINE [Suspect]
     Active Substance: VINCRISTINE
     Indication: EWING^S SARCOMA
     Dosage: VIDE REGIMEN
     Route: 065
  3. AMIKACIN. [Suspect]
     Active Substance: AMIKACIN
     Indication: ANTI-INFECTIVE THERAPY
     Route: 065
  4. AMIKACIN. [Suspect]
     Active Substance: AMIKACIN
     Dosage: GRADUAL DOSE ESCALATION
     Route: 065
  5. FLUCONAZOLE. [Suspect]
     Active Substance: FLUCONAZOLE
     Indication: ANTIFUNGAL PROPHYLAXIS
     Route: 048
  6. POLYMIXIN B [Suspect]
     Active Substance: POLYMYXIN B
     Indication: ANTI-INFECTIVE THERAPY
     Dosage: GRADUAL DOSE ESCALATION
     Route: 065
  7. LIPOSOMAL AMPHOTERICIN B [Suspect]
     Active Substance: AMPHOTERICIN B
     Indication: EVIDENCE BASED TREATMENT
     Route: 065
  8. DOXORUBICIN [Suspect]
     Active Substance: DOXORUBICIN
     Indication: EWING^S SARCOMA
     Dosage: VIDE REGIMEN
     Route: 065
  9. LINEZOLID. [Suspect]
     Active Substance: LINEZOLID
     Indication: ANTI-INFECTIVE THERAPY
     Dosage: GRADUAL DOSE ESCALATION
     Route: 065
  10. FLUCONAZOLE. [Suspect]
     Active Substance: FLUCONAZOLE
     Indication: ANTIFUNGAL PROPHYLAXIS
     Route: 042
  11. ETOPOSIDE. [Suspect]
     Active Substance: ETOPOSIDE
     Indication: EWING^S SARCOMA
     Dosage: VIDE REGIMEN
     Route: 065
  12. MICAFUNGIN. [Suspect]
     Active Substance: MICAFUNGIN SODIUM
     Indication: EVIDENCE BASED TREATMENT
     Route: 065
  13. MEROPENEM. [Suspect]
     Active Substance: MEROPENEM
     Indication: ANTI-INFECTIVE THERAPY
     Route: 065
  14. MEROPENEM. [Suspect]
     Active Substance: MEROPENEM
     Dosage: GRADUAL DOSE ESCALATION
     Route: 065
  15. VANCOMYCIN [Suspect]
     Active Substance: VANCOMYCIN
     Indication: ANTI-INFECTIVE THERAPY
     Route: 065

REACTIONS (13)
  - Stomatitis [Unknown]
  - Febrile neutropenia [Unknown]
  - Dermatitis [Unknown]
  - Neutropenic colitis [Unknown]
  - Aplasia [Unknown]
  - Bone marrow failure [Unknown]
  - Oesophageal candidiasis [Unknown]
  - Vulvovaginitis [Unknown]
  - Cystitis [Unknown]
  - Drug ineffective [Fatal]
  - Multiple organ dysfunction syndrome [Fatal]
  - Candida infection [Fatal]
  - Systemic candida [Fatal]
